FAERS Safety Report 7376009-5 (Version None)
Quarter: 2011Q1

REPORT INFORMATION
  Report Type: 
  Country: None (occurrence: None)
  Receive Date: 20110317
  Receipt Date: 20110307
  Transmission Date: 20110831
  Serious: Yes (Other)
  Sender: FDA-Public Use
  Company Number: 2009-04325

PATIENT
  Age: 58 Year
  Sex: Female
  Weight: 62.6 kg

DRUGS (4)
  1. DEXAMETHASONE TAB [Suspect]
     Indication: MULTIPLE MYELOMA
     Dosage: 40 MG, ORAL
     Route: 048
     Dates: start: 20091005, end: 20091014
  2. DOXORUBICIN (DOXORUBICIN) INJECTION [Suspect]
     Indication: MULTIPLE MYELOMA
     Dosage: 60 MG, INTRAVENOUS
     Route: 042
     Dates: start: 20091005, end: 20091005
  3. CLEXANE (ENOXAPARIN SODIUM) [Suspect]
     Indication: THROMBOSIS PROPHYLAXIS
     Dosage: 40 MG,
     Dates: start: 20090930, end: 20091015
  4. VELCADE [Suspect]
     Indication: MULTIPLE MYELOMA
     Dosage: 2.2 MG, INTRAVENOUS
     Route: 042
     Dates: start: 20091005, end: 20091012

REACTIONS (1)
  - VITREOUS HAEMORRHAGE [None]
